FAERS Safety Report 11571025 (Version 1)
Quarter: 2015Q3

REPORT INFORMATION
  Report Type: Spontaneous
  Country: FR (occurrence: FR)
  Receive Date: 20150929
  Receipt Date: 20150929
  Transmission Date: 20151125
  Serious: Yes (Congenital Anomaly, Other)
  Sender: FDA-Public Use
  Company Number: FR-JNJFOC-20150916786

PATIENT
  Sex: Male

DRUGS (1)
  1. EPITOMAX [Suspect]
     Active Substance: TOPIRAMATE
     Indication: EPILEPSY
     Route: 064
     Dates: end: 2008

REACTIONS (5)
  - Enuresis [Unknown]
  - Talipes [Recovered/Resolved]
  - Foetal exposure during pregnancy [Recovered/Resolved]
  - Speech disorder developmental [Unknown]
  - Reading disorder [Unknown]

NARRATIVE: CASE EVENT DATE: 200806
